FAERS Safety Report 5915073-4 (Version None)
Quarter: 2008Q4

REPORT INFORMATION
  Report Type: 
  Country: None (occurrence: None)
  Receive Date: 20081010
  Receipt Date: 20081003
  Transmission Date: 20090506
  Serious: Yes (Other)
  Sender: FDA-Public Use
  Company Number: A0751221A

PATIENT
  Age: 65 Year
  Sex: Female
  Weight: 63.6 kg

DRUGS (3)
  1. AVANDIA [Suspect]
     Dosage: 4MG PER DAY
     Route: 065
     Dates: start: 20060101, end: 20070101
  2. AVANDAMET [Suspect]
     Dosage: .5TAB PER DAY
     Route: 065
  3. AMARYL [Concomitant]
     Dosage: 4MG PER DAY

REACTIONS (5)
  - CONVULSION [None]
  - DIARRHOEA [None]
  - DIZZINESS [None]
  - LETHARGY [None]
  - VISION BLURRED [None]
